FAERS Safety Report 7315513-2 (Version None)
Quarter: 2011Q1

REPORT INFORMATION
  Report Type: 
  Country: None (occurrence: None)
  Receive Date: 20110225
  Receipt Date: 20110214
  Transmission Date: 20110831
  Serious: Yes (Hospitalization)
  Sender: FDA-Public Use
  Company Number: US-ELI_LILLY_AND_COMPANY-US201101007082

PATIENT
  Sex: Female
  Weight: 106 kg

DRUGS (8)
  1. LORAZEPAM [Concomitant]
     Indication: AGITATION
     Dates: start: 20101207
  2. OLANZAPINE [Suspect]
     Dosage: 15 MG, DAILY (1/D)
  3. DEXMETHYLPHENIDATE HCL [Concomitant]
     Indication: ATTENTION DEFICIT/HYPERACTIVITY DISORDER
     Dates: start: 20100101
  4. OLANZAPINE [Suspect]
     Dosage: 17.5 MG, DAILY (1/D)
     Dates: start: 20110125
  5. FLUTICASONE PROPIONATE [Concomitant]
     Indication: OESOPHAGITIS
     Dates: start: 20100801
  6. PROTONIX [Concomitant]
     Indication: OESOPHAGITIS
     Dates: start: 20100801
  7. INDERAL [Concomitant]
     Indication: RESTLESSNESS
     Dates: start: 20101126, end: 20110125
  8. OLANZAPINE [Suspect]
     Indication: BIPOLAR I DISORDER
     Dosage: 5 MG, DAILY (1/D)
     Dates: start: 20101206

REACTIONS (1)
  - SUICIDAL IDEATION [None]
